FAERS Safety Report 9155802 (Version 3)
Quarter: 2013Q2

REPORT INFORMATION
  Report Type: Spontaneous
  Country: IL (occurrence: IL)
  Receive Date: 20130311
  Receipt Date: 20130401
  Transmission Date: 20140414
  Serious: Yes (Death, Life-Threatening, Hospitalization, Other)
  Sender: FDA-Public Use
  Company Number: IL-B.I. PHARMACEUTICALS,INC./RIDGEFIELD-2013-AP-00194RI

PATIENT
  Age: 75 Year
  Sex: Female

DRUGS (2)
  1. PRADAXA [Suspect]
     Indication: CEREBROVASCULAR ACCIDENT PROPHYLAXIS
     Dosage: 300 MG
     Route: 048
     Dates: start: 20130212, end: 20130225
  2. PRADAXA [Suspect]
     Indication: ATRIAL FIBRILLATION

REACTIONS (27)
  - Upper gastrointestinal haemorrhage [Fatal]
  - Loss of consciousness [Fatal]
  - Renal impairment [Fatal]
  - Prothrombin time prolonged [Fatal]
  - Thrombin time prolonged [Fatal]
  - Coagulation test [Fatal]
  - International normalised ratio [Fatal]
  - Stupor [Fatal]
  - Haematemesis [Fatal]
  - International normalised ratio abnormal [Fatal]
  - Hypotension [Fatal]
  - Hypovolaemia [Fatal]
  - Renal failure acute [Fatal]
  - Coagulopathy [Fatal]
  - Lactic acidosis [Fatal]
  - Hypoperfusion [Fatal]
  - Hypoperfusion [Fatal]
  - Toxicity to various agents [Fatal]
  - Haemoglobin decreased [Fatal]
  - Blood methaemoglobin [Fatal]
  - Shock [Fatal]
  - Troponin [Fatal]
  - Thrombocytopenia [Fatal]
  - Haemorrhage [Fatal]
  - Shock haemorrhagic [Fatal]
  - Haematuria [Fatal]
  - Gastrointestinal haemorrhage [Fatal]
